FAERS Safety Report 25297122 (Version 1)
Quarter: 2025Q2

REPORT INFORMATION
  Report Type: Spontaneous
  Country: US (occurrence: US)
  Receive Date: 20250511
  Receipt Date: 20250511
  Transmission Date: 20250716
  Serious: No
  Sender: UCB
  Company Number: US-UCBSA-2024032966

PATIENT
  Sex: Male
  Weight: 100.59 kg

DRUGS (2)
  1. CIMZIA [Suspect]
     Active Substance: CERTOLIZUMAB PEGOL
     Indication: Psoriasis
     Dosage: 400 MILLIGRAM, (2 MILLILITER), EV 4 WEEKS
     Route: 058
  2. EUFLEXXA [Concomitant]
     Active Substance: HYALURONATE SODIUM
     Indication: Product used for unknown indication

REACTIONS (3)
  - Psoriasis [Unknown]
  - Pain [Unknown]
  - Drug ineffective [Unknown]
